FAERS Safety Report 7304478-5 (Version None)
Quarter: 2011Q1

REPORT INFORMATION
  Report Type: 
  Country: None (occurrence: None)
  Receive Date: 20110221
  Receipt Date: 20110110
  Transmission Date: 20110831
  Serious: Yes (Hospitalization, Other)
  Sender: FDA-Public Use
  Company Number: CA-ABBOTT-11P-028-0696381-00

PATIENT
  Sex: Female
  Weight: 60 kg

DRUGS (1)
  1. MAVIK [Suspect]
     Indication: ESSENTIAL HYPERTENSION
     Dosage: 0.5 MG DAILY
     Route: 048
     Dates: start: 20100308

REACTIONS (1)
  - LUNG NEOPLASM MALIGNANT [None]
